FAERS Safety Report 9740107 (Version 1)
Quarter: 2013Q4

REPORT INFORMATION
  Report Type: Report from Study
  Country: US (occurrence: US)
  Receive Date: 20131209
  Receipt Date: 20131209
  Transmission Date: 20140711
  Serious: Yes (Other)
  Sender: FDA-Public Use
  Company Number: US-ABBVIE-13P-163-1175202-00

PATIENT
  Age: 39 Year
  Sex: Female
  Weight: 57.2 kg

DRUGS (4)
  1. HUMIRA [Suspect]
     Indication: CROHN^S DISEASE
     Route: 058
     Dates: start: 20131022
  2. HUMIRA [Suspect]
     Indication: COLITIS ULCERATIVE
  3. PREDNISONE [Suspect]
     Indication: COLITIS ULCERATIVE
     Dosage: TAPER
  4. NEXIUM [Concomitant]
     Indication: COLITIS ULCERATIVE

REACTIONS (2)
  - Vision blurred [Unknown]
  - Blindness unilateral [Unknown]
